FAERS Safety Report 8510507-3 (Version None)
Quarter: 2012Q3

REPORT INFORMATION
  Report Type: 
  Country: None (occurrence: None)
  Receive Date: 20120716
  Receipt Date: 20120711
  Transmission Date: 20120928
  Serious: Yes (Life-Threatening, Hospitalization, Other)
  Sender: FDA-Public Use
  Company Number: US-ASTRAZENECA-2006UW14368

PATIENT
  Age: 47 Year
  Sex: Male
  Weight: 94.3 kg

DRUGS (64)
  1. SEROQUEL [Suspect]
     Dosage: 25 TO 75 MG
     Route: 048
     Dates: start: 20041206, end: 20051215
  2. TRAZODONE HCL [Concomitant]
     Indication: INSOMNIA
     Dates: start: 19991025
  3. TRAZODONE HCL [Concomitant]
     Indication: DEPRESSION
     Dates: start: 19991025
  4. TRAZODONE HCL [Concomitant]
     Dates: start: 20001120
  5. TRAZODONE HCL [Concomitant]
     Dates: start: 20020829
  6. TRAZODONE HCL [Concomitant]
     Route: 048
     Dates: start: 20061005
  7. HYDROCODONE BITARTRATE [Concomitant]
  8. RISPERDAL [Concomitant]
     Dates: start: 20051003, end: 20051103
  9. FLUOXETINE HCL [Concomitant]
  10. LEVOTHYROXINE SODIUM [Concomitant]
     Dates: start: 20110710
  11. SEROQUEL [Suspect]
     Indication: POST-TRAUMATIC STRESS DISORDER
     Dosage: 25-50 MG HS PLUS 25 MG BID PRN
     Route: 048
     Dates: start: 20041206
  12. SEROQUEL [Suspect]
     Indication: ANXIETY
     Dosage: 25-50 MG HS PLUS 25 MG BID PRN
     Route: 048
     Dates: start: 20041206
  13. SEROQUEL [Suspect]
     Indication: AGITATION
     Dosage: 25-50 MG HS PLUS 25 MG BID PRN
     Route: 048
     Dates: start: 20041206
  14. SEROQUEL [Suspect]
     Dosage: 25 TO 75 MG
     Route: 048
     Dates: start: 20041206, end: 20051215
  15. SEROQUEL [Suspect]
     Dosage: 25 TO 75 MG
     Route: 048
     Dates: start: 20041206, end: 20051215
  16. SEROQUEL [Suspect]
     Route: 048
     Dates: start: 20051103, end: 20051215
  17. SEROQUEL [Suspect]
     Route: 048
     Dates: start: 20051130, end: 20061201
  18. TRAZODONE HCL [Concomitant]
     Dates: start: 20110710
  19. TRAZODONE HCL [Concomitant]
     Dates: start: 20110710
  20. ZETIA [Concomitant]
     Route: 048
  21. SEROQUEL [Suspect]
     Indication: SCHIZOPHRENIA
     Dosage: 25-50 MG HS PLUS 25 MG BID PRN
     Route: 048
     Dates: start: 20041206
  22. SEROQUEL [Suspect]
     Route: 048
     Dates: start: 20051103, end: 20051215
  23. SERTRALINE HYDROCHLORIDE [Concomitant]
     Indication: DEPRESSION
     Dates: start: 19991025, end: 20030611
  24. RANITIDINE HCL [Concomitant]
     Indication: GASTROINTESTINAL DISORDER
     Route: 048
  25. HALDOL [Concomitant]
     Dosage: 5 MG EVERY THREE HOURS
     Dates: start: 20051018, end: 20051028
  26. PREVACID [Concomitant]
     Dates: start: 20051018
  27. MAGNESIUM OXIDE [Concomitant]
     Indication: HYPOMAGNESAEMIA
     Dates: start: 20051017
  28. ASPIRIN [Concomitant]
     Dates: start: 20110710
  29. PAROXETINE HCL [Concomitant]
     Indication: DEPRESSION
     Route: 048
     Dates: start: 20051130, end: 20061201
  30. SEROQUEL [Suspect]
     Route: 048
     Dates: start: 20051103, end: 20051215
  31. SEROQUEL [Suspect]
     Route: 048
     Dates: start: 20051103, end: 20051215
  32. SERTRALINE HYDROCHLORIDE [Concomitant]
     Dates: start: 20020829
  33. TRAZODONE HCL [Concomitant]
     Dates: start: 20020829
  34. FEXOFENADINE HCL [Concomitant]
     Route: 048
  35. MULTI-VITAMIN [Concomitant]
  36. IBUPROFEN [Concomitant]
     Dates: start: 20021002, end: 20021018
  37. THIAMINE [Concomitant]
     Dates: start: 20051016
  38. DOCUSATE SODIUM [Concomitant]
     Dates: start: 20110710
  39. SEROQUEL [Suspect]
     Route: 048
     Dates: start: 20051103, end: 20051215
  40. SEROQUEL [Suspect]
     Route: 048
     Dates: start: 20051130, end: 20061201
  41. RANITIDINE HCL [Concomitant]
     Route: 048
     Dates: start: 20051130, end: 20061201
  42. MIRTAZAPINE [Concomitant]
  43. SERZONE [Concomitant]
  44. HYDROCODONE BITARTRATE AND ACETAMINOPHEN [Concomitant]
     Dosage: ONE TO TWO TABLETS BY MOUTH FOUR TIMES A DAY
     Dates: start: 20051017
  45. POTASSIUM CHLORIDE [Concomitant]
     Dates: start: 20051017
  46. CLONAZEPAM [Concomitant]
     Dates: start: 20110710
  47. SEROQUEL [Suspect]
     Indication: BIPOLAR I DISORDER
     Dosage: 25-50 MG HS PLUS 25 MG BID PRN
     Route: 048
     Dates: start: 20041206
  48. SEROQUEL [Suspect]
     Dosage: 25 TO 75 MG
     Route: 048
     Dates: start: 20041206, end: 20051215
  49. SEROQUEL [Suspect]
     Route: 048
     Dates: start: 20051130, end: 20061201
  50. SEROQUEL [Suspect]
     Route: 048
     Dates: start: 20051130, end: 20061201
  51. SERTRALINE HYDROCHLORIDE [Concomitant]
     Dates: start: 20001120
  52. PRAVASTATIN SODIUM [Concomitant]
     Route: 048
  53. SEROQUEL [Suspect]
     Indication: AFFECTIVE DISORDER
     Dosage: 25-50 MG HS PLUS 25 MG BID PRN
     Route: 048
     Dates: start: 20041206
  54. SEROQUEL [Suspect]
     Dosage: 25 TO 75 MG
     Route: 048
     Dates: start: 20041206, end: 20051215
  55. SEROQUEL [Suspect]
     Dosage: 25 TO 75 MG
     Route: 048
     Dates: start: 20041206, end: 20051215
  56. SEROQUEL [Suspect]
     Route: 048
     Dates: start: 20051103, end: 20051215
  57. METHADONE HCL [Concomitant]
     Indication: PAIN
     Dosage: 5 MG ONE HALF TABLET EVERY EIGHT HOURS
     Dates: start: 20051017
  58. SEROQUEL [Suspect]
     Route: 048
     Dates: start: 20051130, end: 20061201
  59. SEROQUEL [Suspect]
     Route: 048
     Dates: start: 20051130, end: 20061201
  60. TRAZODONE HCL [Concomitant]
     Dates: start: 20001120
  61. TRAZODONE HCL [Concomitant]
     Route: 048
     Dates: start: 20061005
  62. HYDROCHLOROTHIAZIDE [Concomitant]
     Route: 048
  63. INSULIN [Concomitant]
     Indication: DIABETES MELLITUS
     Dosage: 70/30 15 UNITS SUBCUTANEOUSLY TWICE A DAY
     Dates: start: 20051016
  64. NEXIUM [Concomitant]
     Dates: start: 20110710

REACTIONS (41)
  - PLEURAL EFFUSION [None]
  - RENAL FAILURE ACUTE [None]
  - RENAL TUBULAR NECROSIS [None]
  - ATELECTASIS [None]
  - ISCHAEMIA [None]
  - TYPE 2 DIABETES MELLITUS [None]
  - HYPERCHOLESTEROLAEMIA [None]
  - DIABETIC NEUROPATHY [None]
  - DIABETIC COMA [None]
  - DIABETES MELLITUS [None]
  - HYPERLIPIDAEMIA [None]
  - HYPOMAGNESAEMIA [None]
  - PNEUMONIA [None]
  - HYPONATRAEMIA [None]
  - RENAL DISORDER [None]
  - HEPATIC FAILURE [None]
  - METABOLIC ACIDOSIS [None]
  - LOCALISED INTRAABDOMINAL FLUID COLLECTION [None]
  - NAUSEA [None]
  - PULMONARY OEDEMA [None]
  - MULTI-ORGAN FAILURE [None]
  - BLOOD GLUCOSE [None]
  - DEMENTIA [None]
  - PANCREATITIS ACUTE [None]
  - VOMITING [None]
  - DIABETIC HYPEROSMOLAR COMA [None]
  - RESPIRATORY FAILURE [None]
  - PELVIC FLUID COLLECTION [None]
  - DELIRIUM [None]
  - PYREXIA [None]
  - PANCREATITIS [None]
  - BLOOD POTASSIUM DECREASED [None]
  - ENCEPHALOPATHY [None]
  - MYOCARDIAL INFARCTION [None]
  - BRAIN INJURY [None]
  - ELECTROLYTE IMBALANCE [None]
  - HYPERGLYCAEMIA [None]
  - PERICARDITIS [None]
  - HYPERGLYCAEMIC SEIZURE [None]
  - CARDIAC ARREST [None]
  - BLOOD CREATININE INCREASED [None]
